FAERS Safety Report 20918172 (Version 2)
Quarter: 2022Q3

REPORT INFORMATION
  Report Type: Report from Study
  Country: US (occurrence: US)
  Receive Date: 20220606
  Receipt Date: 20220624
  Transmission Date: 20221026
  Serious: Yes (Other)
  Sender: FDA-Public Use
  Company Number: US-NOVARTISTESTPH-NVSC2022US127238

PATIENT
  Sex: Female

DRUGS (1)
  1. GLEEVEC [Suspect]
     Active Substance: IMATINIB MESYLATE
     Indication: Product used for unknown indication
     Dosage: 400 MG (100)
     Route: 065

REACTIONS (7)
  - Weight decreased [Unknown]
  - Dizziness [Unknown]
  - Arthralgia [Unknown]
  - Malaise [Unknown]
  - Adverse reaction [Unknown]
  - Illness [Unknown]
  - Product dose omission issue [Unknown]
